FAERS Safety Report 19666545 (Version 2)
Quarter: 2021Q3

REPORT INFORMATION
  Report Type: Spontaneous
  Country: JP (occurrence: JP)
  Receive Date: 20210806
  Receipt Date: 20210903
  Transmission Date: 20211014
  Serious: Yes (Other)
  Sender: FDA-Public Use
  Company Number: JP-ABBVIE-21K-087-4024667-00

PATIENT
  Age: 71 Year
  Sex: Male

DRUGS (3)
  1. ELETRIPTAN HYDROBROMIDE. [Concomitant]
     Active Substance: ELETRIPTAN HYDROBROMIDE
     Indication: MIGRAINE
     Route: 048
  2. MAVIRET [Suspect]
     Active Substance: GLECAPREVIR\PIBRENTASVIR
     Indication: HEPATIC CIRRHOSIS
     Route: 048
     Dates: start: 20210622, end: 20210630
  3. TOZINAMERAN. [Concomitant]
     Active Substance: TOZINAMERAN
     Indication: COVID-19 IMMUNISATION
     Route: 030
     Dates: start: 20210624, end: 20210624

REACTIONS (6)
  - Nasopharyngitis [Unknown]
  - Blood bilirubin increased [Recovered/Resolved]
  - Malaise [Unknown]
  - Feeding disorder [Unknown]
  - Ocular icterus [Recovered/Resolved]
  - Drug-induced liver injury [Recovered/Resolved]

NARRATIVE: CASE EVENT DATE: 20210630
